FAERS Safety Report 10003312 (Version 2)
Quarter: 2014Q2

REPORT INFORMATION
  Report Type: Report from Study
  Country: US (occurrence: US)
  Receive Date: 20140312
  Receipt Date: 20140417
  Transmission Date: 20141212
  Serious: Yes (Life-Threatening, Hospitalization, Other)
  Sender: FDA-Public Use
  Company Number: PHEH2014US004847

PATIENT
  Age: 43 Year
  Sex: Female
  Weight: 41.8 kg

DRUGS (6)
  1. ILARIS [Suspect]
     Indication: CRYOPYRIN ASSOCIATED PERIODIC SYNDROME
     Dosage: 90 MG, EVERY 8 WEEKS
     Route: 058
     Dates: start: 20130823, end: 20131226
  2. ILARIS [Suspect]
     Indication: FAMILIAL COLD AUTOINFLAMMATORY SYNDROME
  3. PREDNISONE [Concomitant]
     Dosage: 5 MG, BID
     Route: 048
  4. RELPAX [Concomitant]
     Dosage: 40 MG, PRN
     Route: 048
  5. ULTRACET [Concomitant]
     Dosage: 1 DF, PRN
     Route: 048
  6. AMBIEN [Concomitant]
     Dosage: 5 MG, PRN
     Route: 048

REACTIONS (2)
  - Pneumonia [Unknown]
  - Drug ineffective [Unknown]
